FAERS Safety Report 9528205 (Version 3)
Quarter: 2013Q4

REPORT INFORMATION
  Report Type: Spontaneous
  Country: US (occurrence: US)
  Receive Date: 20130917
  Receipt Date: 20131227
  Transmission Date: 20140711
  Serious: Yes (Hospitalization, Other)
  Sender: FDA-Public Use
  Company Number: US-009507513-1112USA00929

PATIENT
  Sex: Female
  Weight: 50.79 kg

DRUGS (6)
  1. FOSAMAX [Suspect]
     Indication: OSTEOPOROSIS
     Dosage: 10 MG, QD
     Route: 048
     Dates: start: 19991019
  2. FOSAMAX [Suspect]
     Indication: OSTEOPENIA
     Dosage: 70 MG, QW
     Route: 048
  3. ALENDRONATE SODIUM [Suspect]
     Indication: BONE DENSITY DECREASED
     Dosage: 70 MG, UNK
     Dates: start: 20080209, end: 200912
  4. ESTROGENS (UNSPECIFIED) [Concomitant]
  5. CALCIUM (UNSPECIFIED) (+) VITAMIN D (UNSPECIFIED) [Concomitant]
     Dosage: 1200 UNK, UNK
  6. LORATADINE [Concomitant]
     Dosage: 10 MG, UNK
     Route: 048

REACTIONS (21)
  - Femur fracture [Unknown]
  - Intramedullary rod insertion [Recovered/Resolved]
  - Femur fracture [Unknown]
  - Intramedullary rod insertion [Recovering/Resolving]
  - Renal failure acute [Recovering/Resolving]
  - Hypercholesterolaemia [Unknown]
  - Essential hypertension [Unknown]
  - Skin lesion [Unknown]
  - Hysterectomy [Unknown]
  - Macular degeneration [Unknown]
  - Diverticulum [Unknown]
  - Hypotension [Unknown]
  - Anaemia postoperative [Unknown]
  - Cardiomegaly [Unknown]
  - Pleural fibrosis [Unknown]
  - Atrioventricular block first degree [Unknown]
  - Blood urea increased [Unknown]
  - Blood creatinine increased [Unknown]
  - Haemorrhagic anaemia [Recovering/Resolving]
  - Dyspepsia [Unknown]
  - Pain in extremity [Recovering/Resolving]
